FAERS Safety Report 6541452-0 (Version None)
Quarter: 2010Q1

REPORT INFORMATION
  Report Type: 
  Country: None (occurrence: None)
  Receive Date: 20100118
  Receipt Date: 20100111
  Transmission Date: 20100710
  Serious: Yes (Other)
  Sender: FDA-Public Use
  Company Number: US-GILEAD-2010-0026393

PATIENT
  Sex: Female
  Weight: 131.66 kg

DRUGS (22)
  1. LETAIRIS [Suspect]
     Indication: PULMONARY ARTERIAL HYPERTENSION
     Route: 048
     Dates: start: 20091113
  2. REVATIO [Concomitant]
  3. LASIX [Concomitant]
  4. DIOVAN [Concomitant]
  5. LOPRESSOR [Concomitant]
  6. NORVASC [Concomitant]
  7. HUMALOG [Concomitant]
  8. LANTUS [Concomitant]
  9. SINGULAIR [Concomitant]
  10. FLONASE [Concomitant]
  11. XOPENEX HFA [Concomitant]
  12. DARVOCET-N 100 [Concomitant]
  13. ZOCOR [Concomitant]
  14. XANAX [Concomitant]
  15. AMBIEN [Concomitant]
  16. REGLAN [Concomitant]
  17. ALLEGRA [Concomitant]
  18. ASPIRIN [Concomitant]
  19. PLAVIX [Concomitant]
  20. PROZAC [Concomitant]
  21. COLACE-T [Concomitant]
  22. PROTONIX [Concomitant]

REACTIONS (2)
  - LOSS OF CONSCIOUSNESS [None]
  - OEDEMA PERIPHERAL [None]
